FAERS Safety Report 6558914-2 (Version None)
Quarter: 2010Q1

REPORT INFORMATION
  Report Type: 
  Country: None (occurrence: None)
  Receive Date: 20100129
  Receipt Date: 20100128
  Transmission Date: 20100710
  Serious: Yes (Death)
  Sender: FDA-Public Use
  Company Number: JP-EISAI INC.-E2020-05929-SPO-JP

PATIENT
  Age: 81 Year
  Sex: Female

DRUGS (3)
  1. ARICEPT [Suspect]
     Indication: DEMENTIA ALZHEIMER'S TYPE
     Route: 048
     Dates: start: 20100126, end: 20100127
  2. VASOLAN [Concomitant]
     Indication: SUPRAVENTRICULAR TACHYCARDIA
     Route: 048
     Dates: start: 20100126, end: 20100127
  3. GASTER D [Concomitant]
     Route: 048
     Dates: start: 20100126, end: 20100127

REACTIONS (2)
  - ABDOMINAL PAIN [None]
  - CARDIAC FAILURE [None]
